FAERS Safety Report 6306273-2 (Version None)
Quarter: 2009Q3

REPORT INFORMATION
  Report Type: 
  Country: None (occurrence: None)
  Receive Date: 20090812
  Receipt Date: 20090804
  Transmission Date: 20100115
  Serious: Yes (Hospitalization)
  Sender: FDA-Public Use
  Company Number: PHHO2009US08866

PATIENT
  Sex: Female

DRUGS (2)
  1. RAD 666 RAD+TAB [Suspect]
     Indication: BREAST CANCER
     Dosage: 30MG WEEKLY
     Route: 048
     Dates: start: 20090626, end: 20090706
  2. CISPLATIN COMP-CIS+ [Suspect]
     Indication: BREAST CANCER
     Dosage: 25 MG/M2, QW
     Route: 042
     Dates: start: 20090626, end: 20090706

REACTIONS (2)
  - ILEUS [None]
  - INTESTINAL OBSTRUCTION [None]
